FAERS Safety Report 18541040 (Version 1)
Quarter: 2020Q4

REPORT INFORMATION
  Report Type: Spontaneous
  Country: JP (occurrence: JP)
  Receive Date: 20201124
  Receipt Date: 20201124
  Transmission Date: 20210114
  Serious: Yes (Hospitalization)
  Sender: FDA-Public Use
  Company Number: JP-DSJP-DSJ-2020-135300

PATIENT
  Age: 81 Year
  Sex: Male

DRUGS (8)
  1. TENELIGLIPTIN [Concomitant]
     Active Substance: TENELIGLIPTIN
     Dosage: 20 MG, QD
     Route: 065
  2. PITAVASTATIN                       /06470002/ [Concomitant]
     Active Substance: PITAVASTATIN CALCIUM
     Dosage: 1 MG, QD
     Route: 065
  3. GLIMEPIRIDE. [Concomitant]
     Active Substance: GLIMEPIRIDE
     Dosage: 1 MG, QD
     Route: 065
  4. PIOGLITAZONE                       /01460202/ [Concomitant]
     Active Substance: PIOGLITAZONE HYDROCHLORIDE
     Dosage: 15 MG, QD
     Route: 065
  5. VOGLIBOSE [Concomitant]
     Active Substance: VOGLIBOSE
     Dosage: 0.1 MG, TID
     Route: 065
  6. OLMETEC OD TABLETS 40MG [Suspect]
     Active Substance: OLMESARTAN MEDOXOMIL
     Indication: PRODUCT USED FOR UNKNOWN INDICATION
     Dosage: 40 MG, QD
     Route: 065
  7. CALCIUM POLYSTYRENE SULFONATE [Concomitant]
     Active Substance: CALCIUM POLYSTYRENE SULFONATE
     Dosage: 12.5 G, BID
     Route: 065
  8. NIFEDIPINE. [Concomitant]
     Active Substance: NIFEDIPINE
     Dosage: 10 MG, QD
     Route: 065

REACTIONS (1)
  - Rib fracture [Unknown]
